FAERS Safety Report 7417770-0 (Version None)
Quarter: 2011Q2

REPORT INFORMATION
  Report Type: 
  Country: None (occurrence: None)
  Receive Date: 20110415
  Receipt Date: 20110407
  Transmission Date: 20111010
  Serious: Yes (Other)
  Sender: FDA-Public Use
  Company Number: US-PFIZER INC-2011077324

PATIENT

DRUGS (5)
  1. PRENATAL VITAMINS [Concomitant]
     Dosage: UNK
     Route: 064
  2. EFFEXOR XR [Suspect]
     Indication: ANXIETY
     Dosage: 75 MG, UNK
     Route: 064
  3. ZOLOFT [Suspect]
     Indication: ANXIETY
     Dosage: 50 MG, UNK
     Route: 064
  4. ZOLOFT [Suspect]
     Indication: DEPRESSION
     Dosage: 100 MG, UNK
     Route: 064
  5. FOLIC ACID [Concomitant]
     Dosage: UNK
     Route: 064

REACTIONS (2)
  - DRUG EXPOSURE DURING PREGNANCY [None]
  - CONGENITAL ANOMALY [None]
